FAERS Safety Report 5852547-9 (Version None)
Quarter: 2008Q3

REPORT INFORMATION
  Report Type: 
  Country: None (occurrence: None)
  Receive Date: 20080820
  Receipt Date: 20080820
  Transmission Date: 20090109
  Serious: Yes (Hospitalization)
  Sender: FDA-Public Use
  Company Number: None

PATIENT
  Age: 46 Year
  Sex: Female
  Weight: 88.4514 kg

DRUGS (1)
  1. BENTYL [Suspect]
     Indication: IRRITABLE BOWEL SYNDROME
     Dosage: 1 - 10MG 3 TIMES A DAY, 4 MONTHS
     Dates: start: 20080519, end: 20080817

REACTIONS (11)
  - ANXIETY [None]
  - CEREBROVASCULAR ACCIDENT [None]
  - CHEST PAIN [None]
  - CONFUSIONAL STATE [None]
  - DIZZINESS [None]
  - EYE PAIN [None]
  - HEART RATE INCREASED [None]
  - MEMORY IMPAIRMENT [None]
  - MENTAL DISORDER [None]
  - POST-TRAUMATIC STRESS DISORDER [None]
  - SURGERY [None]
